FAERS Safety Report 9404716 (Version 2)
Quarter: 2013Q3

REPORT INFORMATION
  Report Type: Spontaneous
  Country: ES (occurrence: None)
  Receive Date: 20130703
  Receipt Date: 20130718
  Transmission Date: 20140515
  Serious: Yes (Other)
  Sender: FDA-Public Use
  Company Number: 2013036714

PATIENT
  Age: 33 Year
  Sex: Male

DRUGS (1)
  1. IMMUNOGLOBULIN [Suspect]
     Indication: GUILLAIN-BARRE SYNDROME

REACTIONS (1)
  - Drug ineffective [None]
